FAERS Safety Report 8837959 (Version 1)
Quarter: 2012Q4

REPORT INFORMATION
  Report Type: Report from Study
  Country: PL (occurrence: PL)
  Receive Date: 20121012
  Receipt Date: 20121012
  Transmission Date: 20130627
  Serious: Yes (Hospitalization, Other)
  Sender: FDA-Public Use
  Company Number: PL-BAXTER-2012BAX019364

PATIENT
  Sex: Female
  Weight: 101 kg

DRUGS (12)
  1. ENDOXAN [Suspect]
     Indication: B-CELL CHRONIC LYMPHOCYTIC LEUKEMIA
     Route: 042
     Dates: start: 20091218
  2. ENDOXAN [Suspect]
     Route: 042
     Dates: start: 20100510
  3. RITUXIMAB [Suspect]
     Indication: B-CELL CHRONIC LYMPHOCYTIC LEUKEMIA
     Route: 042
     Dates: start: 20091217
  4. RITUXIMAB [Suspect]
     Route: 042
     Dates: start: 20100802
  5. RITUXIMAB [Suspect]
     Dosage: Maintenance Phase
     Route: 042
  6. CLADRIBINE [Suspect]
     Indication: B-CELL CHRONIC LYMPHOCYTIC LEUKEMIA
     Route: 042
     Dates: start: 20091218
  7. CLADRIBINE [Suspect]
     Route: 042
     Dates: start: 20100510
  8. ACYCLOVIR [Concomitant]
     Indication: DRUG USE FOR UNKNOWN INDICATION
     Route: 065
     Dates: start: 20091217
  9. BIRODOGYL [Concomitant]
     Indication: DRUG USE FOR UNKNOWN INDICATION
     Dosage: 1920 UNIT NOT REPORTED
     Route: 065
     Dates: start: 20081217
  10. PRESTARIUM NEO [Concomitant]
     Indication: DRUG USE FOR UNKNOWN INDICATION
     Dosage: 5 UNIT NOT REPORTED
     Route: 065
     Dates: start: 20091217
  11. KETOPROFEN [Concomitant]
     Indication: DRUG USE FOR UNKNOWN INDICATION
     Dosage: 300 UNIT NOT REPORTED
     Route: 065
     Dates: start: 20100507
  12. SULFAMETHOXAZOLE/TRIMETHOPRIM DS [Concomitant]
     Indication: DRUG USE FOR UNKNOWN INDICATION
     Route: 065
     Dates: start: 20091217

REACTIONS (3)
  - Squamous cell carcinoma of skin [Recovered/Resolved]
  - Squamous cell carcinoma of the oral cavity [Recovered/Resolved]
  - Skin ulcer [Recovered/Resolved with Sequelae]
